FAERS Safety Report 13731744 (Version 2)
Quarter: 2017Q3

REPORT INFORMATION
  Report Type: Spontaneous
  Country: US (occurrence: US)
  Receive Date: 20170707
  Receipt Date: 20170713
  Transmission Date: 20171127
  Serious: No
  Sender: FDA-Public Use
  Company Number: US-AMGEN-USASP2017101723

PATIENT
  Age: 7 Year
  Sex: Male

DRUGS (1)
  1. ENBREL [Suspect]
     Active Substance: ETANERCEPT
     Indication: JUVENILE IDIOPATHIC ARTHRITIS
     Dosage: 20 MG (0.8 ML), QWK
     Route: 058

REACTIONS (4)
  - Joint stiffness [Not Recovered/Not Resolved]
  - Drug dose omission [Unknown]
  - Joint swelling [Not Recovered/Not Resolved]
  - Joint range of motion decreased [Unknown]

NARRATIVE: CASE EVENT DATE: 2017
